FAERS Safety Report 10693012 (Version 1)
Quarter: 2015Q1

REPORT INFORMATION
  Report Type: Spontaneous
  Country: US (occurrence: None)
  Receive Date: 20150105
  Receipt Date: 20150105
  Transmission Date: 20150720
  Serious: Yes (Hospitalization, Disabling)
  Sender: FDA-Public Use
  Company Number: None

PATIENT
  Age: 52 Year
  Sex: Female
  Weight: 50.8 kg

DRUGS (1)
  1. VORICONAZOLE. [Suspect]
     Active Substance: VORICONAZOLE
     Indication: ASPERGILLUS INFECTION
     Dosage: ONE TABLET
     Route: 048
     Dates: start: 20110518, end: 20110606

REACTIONS (5)
  - Eyelid ptosis [None]
  - Diplopia [None]
  - Fatigue [None]
  - Myasthenia gravis [None]
  - Ophthalmoplegia [None]

NARRATIVE: CASE EVENT DATE: 20110603
